FAERS Safety Report 9165935 (Version 1)
Quarter: 2013Q1

REPORT INFORMATION
  Report Type: Spontaneous
  Country: ES (occurrence: ES)
  Receive Date: 20130315
  Receipt Date: 20130315
  Transmission Date: 20140127
  Serious: Yes (Life-Threatening, Hospitalization)
  Sender: FDA-Public Use
  Company Number: ES-ROXANE LABORATORIES, INC.-2013-RO-00366RO

PATIENT
  Age: 34 Year
  Sex: Female

DRUGS (7)
  1. FLUCONAZOLE [Suspect]
     Indication: ANTIFUNGAL PROPHYLAXIS
     Dosage: 100 MG
  2. MYCOPHENOLATE MOFETIL [Suspect]
     Indication: IMMUNOSUPPRESSION
  3. MYCOPHENOLATE MOFETIL [Suspect]
     Indication: RENAL TRANSPLANT
  4. TACROLIMUS [Suspect]
     Indication: IMMUNOSUPPRESSION
  5. TACROLIMUS [Suspect]
     Indication: RENAL TRANSPLANT
  6. CORTICOSTEROIDS [Suspect]
     Indication: IMMUNOSUPPRESSION
  7. CORTICOSTEROIDS [Suspect]
     Indication: RENAL TRANSPLANT

REACTIONS (3)
  - Systemic candida [Recovered/Resolved]
  - Septic shock [Recovered/Resolved]
  - Wound infection staphylococcal [Unknown]
